FAERS Safety Report 6861513-6 (Version None)
Quarter: 2010Q3

REPORT INFORMATION
  Report Type: 
  Country: None (occurrence: None)
  Receive Date: 20100720
  Receipt Date: 20100720
  Transmission Date: 20110219
  Serious: Yes (Other)
  Sender: FDA-Public Use
  Company Number: None

PATIENT
  Age: 38 Year
  Sex: Female
  Weight: 54.4316 kg

DRUGS (1)
  1. BACTRIM [Suspect]
     Indication: LOCALISED INFECTION
     Dosage: 2 TABLETS/DAY PO
     Route: 048
     Dates: start: 20100705, end: 20100714

REACTIONS (3)
  - PRURITUS [None]
  - RASH [None]
  - URTICARIA [None]
